FAERS Safety Report 4323415-9 (Version None)
Quarter: 2004Q1

REPORT INFORMATION
  Report Type: 
  Country: None (occurrence: None)
  Receive Date: 20040325
  Receipt Date: 20040316
  Transmission Date: 20041129
  Serious: Yes (Hospitalization)
  Sender: FDA-Public Use
  Company Number: IT-GLAXOSMITHKLINE-B0327419A

PATIENT
  Age: 46 Year
  Sex: Female

DRUGS (1)
  1. AMOXICILLIN AND CLAVULANATE POTASSIUM [Suspect]
     Indication: ACUTE SINUSITIS
     Route: 048
     Dates: start: 20040314, end: 20040314

REACTIONS (3)
  - DYSPNOEA [None]
  - GENERALISED ERYTHEMA [None]
  - HYPERSENSITIVITY [None]
